FAERS Safety Report 6737570-4 (Version None)
Quarter: 2010Q2

REPORT INFORMATION
  Report Type: 
  Country: None (occurrence: None)
  Receive Date: 20100521
  Receipt Date: 20100521
  Transmission Date: 20101027
  Serious: Yes (Hospitalization)
  Sender: FDA-Public Use
  Company Number: None

PATIENT
  Age: 63 Year
  Sex: Female
  Weight: 142 kg

DRUGS (10)
  1. DICLOFENAC SODIUM [Suspect]
     Indication: OSTEOARTHRITIS
     Dosage: ONE TIME PO
     Route: 048
     Dates: start: 20100401, end: 20100401
  2. METOPROLOL XL [Concomitant]
  3. TORSEMIDE [Concomitant]
  4. POTASSIUM CHLORIDE [Concomitant]
  5. GLUCOSAMINE [Concomitant]
  6. MULTI-VITAMIN [Concomitant]
  7. ASPIRIN [Concomitant]
  8. IRBESARTAN/HCTZ [Concomitant]
  9. VITAMIN C [Concomitant]
  10. VITAMIN D [Concomitant]

REACTIONS (7)
  - DYSPNOEA [None]
  - HYPOTENSION [None]
  - LIP SWELLING [None]
  - SWOLLEN TONGUE [None]
  - SYNCOPE [None]
  - UNRESPONSIVE TO STIMULI [None]
  - URTICARIA [None]
